FAERS Safety Report 14174950 (Version 1)
Quarter: 2017Q4

REPORT INFORMATION
  Report Type: Spontaneous
  Country: NL (occurrence: NL)
  Receive Date: 20171109
  Receipt Date: 20171109
  Transmission Date: 20180321
  Serious: Yes (Death, Hospitalization)
  Sender: FDA-Public Use
  Company Number: NL-TEVA-823709ROM

PATIENT
  Age: 83 Year
  Sex: Female
  Weight: 53 kg

DRUGS (4)
  1. METHOTREXAAT TABLET 2.5MG [Suspect]
     Active Substance: METHOTREXATE
     Indication: SARCOIDOSIS
     Dosage: 4 TABLETS 1 TIME PER WEEK
     Route: 048
     Dates: start: 2014
  2. FOLIUMZUUR [Concomitant]
     Active Substance: FOLIC ACID
     Route: 048
  3. CALCIUMCARB/COLECAL BRUISGR 1,25G/440IE (500MG CA) [Concomitant]
     Route: 048
  4. LITHIUMCARBONAAT TABLET 300MG [Concomitant]
     Dosage: 300 MILLIGRAM DAILY;
     Route: 048

REACTIONS (2)
  - Lymphadenopathy [Fatal]
  - Lymphoma [Fatal]

NARRATIVE: CASE EVENT DATE: 201510
